FAERS Safety Report 21550414 (Version 2)
Quarter: 2022Q4

REPORT INFORMATION
  Report Type: Other
  Country: None (occurrence: JP)
  Receive Date: 20221103
  Receipt Date: 20221219
  Transmission Date: 20230113
  Serious: Yes (Other)
  Sender: FDA-Public Use
  Company Number: JP-ALSI-2022000227

PATIENT
  Age: 23 Year
  Sex: Female
  Weight: 46 kg

DRUGS (5)
  1. NITROUS OXIDE [Suspect]
     Active Substance: NITROUS OXIDE
     Indication: General anaesthesia
     Route: 055
     Dates: start: 20220210, end: 20220210
  2. SEVOFLURANE [Suspect]
     Active Substance: SEVOFLURANE
     Route: 055
     Dates: start: 20220210, end: 20220210
  3. PROPOFOL [Suspect]
     Active Substance: PROPOFOL
     Route: 042
     Dates: start: 20220210, end: 20220210
  4. PENTAZOCINE [Suspect]
     Active Substance: PENTAZOCINE
     Route: 042
     Dates: start: 20220210, end: 20220210
  5. XYLOCAINE [Suspect]
     Active Substance: LIDOCAINE HYDROCHLORIDE
     Route: 058
     Dates: start: 20220210, end: 20220210

REACTIONS (1)
  - Neuroleptic malignant syndrome [Recovered/Resolved]

NARRATIVE: CASE EVENT DATE: 20220210
